FAERS Safety Report 9472658 (Version 2)
Quarter: 2013Q3

REPORT INFORMATION
  Report Type: Report from Study
  Country: CA (occurrence: CA)
  Receive Date: 20130823
  Receipt Date: 20130823
  Transmission Date: 20140515
  Serious: Yes (Other)
  Sender: FDA-Public Use
  Company Number: CA-JNJFOC-20121111977

PATIENT
  Age: 30 Year
  Sex: Female
  Weight: 67 kg

DRUGS (2)
  1. REMICADE [Suspect]
     Indication: CROHN^S DISEASE
     Route: 042
     Dates: start: 200904
  2. REMICADE [Suspect]
     Indication: CROHN^S DISEASE
     Route: 042
     Dates: start: 20090615

REACTIONS (5)
  - Caesarean section [Recovering/Resolving]
  - Exposure during pregnancy [Recovered/Resolved]
  - Nasopharyngitis [Not Recovered/Not Resolved]
  - Multiple allergies [Not Recovered/Not Resolved]
  - Rhinorrhoea [Not Recovered/Not Resolved]
